FAERS Safety Report 24923869 (Version 1)
Quarter: 2025Q1

REPORT INFORMATION
  Report Type: Spontaneous
  Country: US (occurrence: US)
  Receive Date: 20250204
  Receipt Date: 20250204
  Transmission Date: 20250409
  Serious: No
  Sender: PFIZER
  Company Number: US-PFIZER INC-202500021554

PATIENT
  Age: 31 Year
  Sex: Female

DRUGS (1)
  1. LITFULO [Suspect]
     Active Substance: RITLECITINIB TOSYLATE
     Indication: Alopecia areata
     Dates: start: 2024

REACTIONS (4)
  - Skin lesion [Unknown]
  - Migraine with aura [Unknown]
  - Brain fog [Unknown]
  - Contusion [Unknown]

NARRATIVE: CASE EVENT DATE: 20240101
